FAERS Safety Report 10211045 (Version 1)
Quarter: 2014Q2

REPORT INFORMATION
  Report Type: Spontaneous
  Country: BR (occurrence: BR)
  Receive Date: 20140602
  Receipt Date: 20140602
  Transmission Date: 20141212
  Serious: Yes (Other)
  Sender: FDA-Public Use
  Company Number: BR-BRISTOL-MYERS SQUIBB COMPANY-20857777

PATIENT
  Age: 4 Decade
  Sex: Female

DRUGS (2)
  1. ORENCIA FOR INJ [Suspect]
     Indication: RHEUMATOID ARTHRITIS
     Dosage: 1ST DOSE ON APR14?2ND DOSE ON 13MAY14
     Route: 042
     Dates: start: 201404
  2. PRELONE [Concomitant]

REACTIONS (1)
  - Hepatic enzyme increased [Unknown]
